FAERS Safety Report 5639549-2 (Version None)
Quarter: 2008Q1

REPORT INFORMATION
  Report Type: 
  Country: None (occurrence: None)
  Receive Date: 20080226
  Receipt Date: 20080220
  Transmission Date: 20080703
  Serious: Yes (Hospitalization)
  Sender: FDA-Public Use
  Company Number: ZA-MERCK-0802ZAF00112

PATIENT
  Age: 11 Year

DRUGS (4)
  1. SINGULAIR [Suspect]
     Indication: ASTHMA
     Route: 048
  2. CETIRIZINE HYDROCHLORIDE [Concomitant]
     Route: 065
  3. FLUTICASONE PROPIONATE [Concomitant]
     Route: 065
  4. BUDESONIDE [Concomitant]
     Route: 065

REACTIONS (1)
  - HAEMATEMESIS [None]
